FAERS Safety Report 19162255 (Version 1)
Quarter: 2021Q2

REPORT INFORMATION
  Report Type: Report from Study
  Country: None (occurrence: NL)
  Receive Date: 20210421
  Receipt Date: 20210421
  Transmission Date: 20210717
  Serious: Yes (Death)
  Sender: FDA-Public Use
  Company Number: NL-ABBVIE-21K-114-3866050-00

PATIENT
  Sex: Female

DRUGS (2)
  1. AZACITIDINE. [Suspect]
     Active Substance: AZACITIDINE
     Indication: ACUTE MYELOID LEUKAEMIA
     Dosage: DAY 1?7
     Route: 065
     Dates: start: 20200203, end: 20201211
  2. VENETOCLAX. [Suspect]
     Active Substance: VENETOCLAX
     Indication: ACUTE MYELOID LEUKAEMIA
     Dosage: UNK MG
     Route: 048
     Dates: start: 2021, end: 2021

REACTIONS (3)
  - Off label use [Unknown]
  - Neutropenia [Fatal]
  - Clostridial infection [Fatal]

NARRATIVE: CASE EVENT DATE: 2021
